FAERS Safety Report 25023932 (Version 1)
Quarter: 2025Q1

REPORT INFORMATION
  Report Type: Spontaneous
  Country: US (occurrence: None)
  Receive Date: 20250228
  Receipt Date: 20250228
  Transmission Date: 20250409
  Serious: Yes (Hospitalization)
  Sender: FDA-CTU
  Company Number: None

PATIENT
  Age: 81 Year
  Sex: Male

DRUGS (2)
  1. TIRZEPATIDE [Suspect]
     Active Substance: TIRZEPATIDE
     Indication: Weight decreased
  2. TIRZEPATIDE [Suspect]
     Active Substance: TIRZEPATIDE

REACTIONS (2)
  - Small intestinal obstruction [None]
  - Diabetic gastroparesis [None]

NARRATIVE: CASE EVENT DATE: 20240603
